FAERS Safety Report 4368798-9 (Version None)
Quarter: 2004Q2

REPORT INFORMATION
  Report Type: 
  Country: None (occurrence: None)
  Receive Date: 20040528
  Receipt Date: 20040519
  Transmission Date: 20050107
  Serious: Yes (Other)
  Sender: FDA-Public Use
  Company Number: 2004033869

PATIENT
  Sex: Female
  Weight: 72.5755 kg

DRUGS (4)
  1. NEURONTIN [Suspect]
     Indication: MIGRAINE
     Dosage: 200 MG (D), ORAL
     Route: 048
     Dates: end: 20020101
  2. ALL OTHER THERAPEUTIC PRODUCTS (ALL OTHER THERAPEUTIC PRODUCTS) [Concomitant]
  3. ESTRADIOL [Concomitant]
  4. NADOLOL (NDOLOL) [Concomitant]

REACTIONS (5)
  - BRAIN DAMAGE [None]
  - CONFUSIONAL STATE [None]
  - DIVERTICULAR PERFORATION [None]
  - MEMORY IMPAIRMENT [None]
  - POST PROCEDURAL COMPLICATION [None]
